FAERS Safety Report 4267236-4 (Version None)
Quarter: 2004Q1

REPORT INFORMATION
  Report Type: 
  Country: None (occurrence: None)
  Receive Date: 20040107
  Receipt Date: 20031231
  Transmission Date: 20041129
  Serious: Yes (Hospitalization)
  Sender: FDA-Public Use
  Company Number: LTI2003A00182

PATIENT
  Age: 69 Year
  Sex: Male

DRUGS (2)
  1. ENANTONE LP  (LEUPROLIDE ACETATE) [Suspect]
     Indication: PROSTATE CANCER
     Dosage: 11.25 MG (11.25 MG, 1 IN 3 M) INTRAMUSCULAR
     Route: 030
     Dates: start: 20010413, end: 20010413
  2. CASODEX (BICALUTAMIDE) (50 MILLIGRAM, TABLETS) [Concomitant]

REACTIONS (12)
  - ASTHENIA [None]
  - DIABETES INSIPIDUS [None]
  - DIPLOPIA [None]
  - EYELID PTOSIS [None]
  - HEADACHE [None]
  - HEMIANOPIA HETERONYMOUS [None]
  - HYPOPITUITARISM [None]
  - IIIRD NERVE PARALYSIS [None]
  - NOCTURIA [None]
  - PITUITARY HAEMORRHAGE [None]
  - PITUITARY TUMOUR BENIGN [None]
  - VOMITING [None]
